FAERS Safety Report 7118196-X (Version None)
Quarter: 2010Q4

REPORT INFORMATION
  Report Type: 
  Country: None (occurrence: None)
  Receive Date: 20101123
  Receipt Date: 20100202
  Transmission Date: 20110411
  Serious: No
  Sender: FDA-Public Use
  Company Number: US-MYLANLABS-2010S1001828

PATIENT
  Sex: Male

DRUGS (2)
  1. DOXAZOSIN TABLETS [Suspect]
     Indication: BENIGN PROSTATIC HYPERPLASIA
     Route: 048
     Dates: start: 20090101, end: 20090101
  2. DOXAZOSIN TABLETS [Suspect]
     Route: 048
     Dates: start: 20100101

REACTIONS (2)
  - DYSURIA [None]
  - NASAL CONGESTION [None]
